FAERS Safety Report 5980073-5 (Version None)
Quarter: 2008Q4

REPORT INFORMATION
  Report Type: 
  Country: None (occurrence: None)
  Receive Date: 20081128
  Receipt Date: 20081114
  Transmission Date: 20090506
  Serious: Yes (Death, Other)
  Sender: FDA-Public Use
  Company Number: 2008US002906

PATIENT
  Age: 24 Year
  Sex: Male
  Weight: 60 kg

DRUGS (5)
  1. AMBISOME [Suspect]
     Indication: MENINGITIS CRYPTOCOCCAL
     Dosage: 300 MG, UID/QD
     Dates: start: 20081003, end: 20081004
  2. PREDONINE (PREDNISOLONE SODIUM SUCCINATE) [Concomitant]
  3. BAKAR (SULFAMETHOXAZOLE, TRIMETHOPRIM) [Concomitant]
  4. GAMOFA [Concomitant]
  5. ROCEPHIN [Concomitant]

REACTIONS (2)
  - CARDIO-RESPIRATORY ARREST [None]
  - RENAL FAILURE ACUTE [None]
